FAERS Safety Report 5287360-7 (Version None)
Quarter: 2007Q1

REPORT INFORMATION
  Report Type: 
  Country: None (occurrence: None)
  Receive Date: 20070116
  Receipt Date: 20061127
  Transmission Date: 20070707
  Serious: No
  Sender: FDA-Public Use
  Company Number: 2006SP004164

PATIENT
  Age: 41 Year
  Sex: Male
  Weight: 97.5234 kg

DRUGS (2)
  1. LUNESTA [Suspect]
     Indication: INSOMNIA
     Dosage: 2 MG;ORAL
     Route: 048
     Dates: start: 20061122, end: 20061123
  2. HYDROCHLOROTHIAZIDE [Suspect]
     Indication: HYPERTENSION
     Dosage: 25 MG;ORAL
     Route: 048
     Dates: start: 20061122

REACTIONS (8)
  - ABDOMINAL PAIN UPPER [None]
  - ASTHENIA [None]
  - DIZZINESS [None]
  - FEELING HOT [None]
  - NAUSEA [None]
  - PETIT MAL EPILEPSY [None]
  - STOMACH DISCOMFORT [None]
  - VOMITING [None]
